FAERS Safety Report 23028225 (Version 1)
Quarter: 2023Q4

REPORT INFORMATION
  Report Type: Report from Study
  Country: CA (occurrence: CA)
  Receive Date: 20231004
  Receipt Date: 20231004
  Transmission Date: 20240110
  Serious: Yes (Hospitalization, Other)
  Sender: FDA-Public Use
  Company Number: CA-Merck Healthcare KGaA-2023477313

PATIENT
  Sex: Female

DRUGS (1)
  1. MAVENCLAD [Suspect]
     Active Substance: CLADRIBINE
     Indication: Multiple sclerosis
     Dosage: YEAR ONE THERAPY
     Route: 048
     Dates: start: 20220610

REACTIONS (7)
  - Illness [Unknown]
  - Pneumonia [Unknown]
  - Ulcer haemorrhage [Unknown]
  - Seizure [Unknown]
  - Aphasia [Unknown]
  - Dysphonia [Unknown]
  - Pain [Unknown]
